FAERS Safety Report 15378339 (Version 2)
Quarter: 2018Q4

REPORT INFORMATION
  Report Type: Spontaneous
  Country: HU (occurrence: HU)
  Receive Date: 20180913
  Receipt Date: 20181008
  Transmission Date: 20190204
  Serious: Yes (Other)
  Sender: FDA-Public Use
  Company Number: HU-BAXTER-2018BAX023334

PATIENT
  Age: 48 Year
  Sex: Female

DRUGS (5)
  1. CARBOPLATIN. [Suspect]
     Active Substance: CARBOPLATIN
     Indication: DIFFUSE LARGE B-CELL LYMPHOMA REFRACTORY
     Dosage: DOSAGE FORM: UNSPECIFIED
     Route: 065
     Dates: start: 20180619
  2. HOLOXAN 2000 MG POR OLDATOS INJEKCI?HOZ [Suspect]
     Active Substance: IFOSFAMIDE
     Indication: DIFFUSE LARGE B-CELL LYMPHOMA REFRACTORY
     Dosage: DOSAGE FORM: UNSPECIFIED
     Route: 065
     Dates: start: 20180619
  3. RITUXIMAB. [Suspect]
     Active Substance: RITUXIMAB
     Indication: DIFFUSE LARGE B-CELL LYMPHOMA REFRACTORY
     Dosage: DOSAGE FORM: UNSPECIFIED
     Route: 065
     Dates: start: 20180619
  4. IMBRUVICA [Suspect]
     Active Substance: IBRUTINIB
     Indication: DIFFUSE LARGE B-CELL LYMPHOMA REFRACTORY
     Dosage: DOSAGE FORM: UNSPECIFIED
     Route: 048
     Dates: start: 20180710
  5. ETOPOSIDE. [Suspect]
     Active Substance: ETOPOSIDE
     Indication: DIFFUSE LARGE B-CELL LYMPHOMA REFRACTORY
     Dosage: DOSAGE FORM: UNSPECIFIED, FOR 3 DAYS / CYCLE
     Route: 065
     Dates: start: 20180619

REACTIONS (3)
  - Off label use [Unknown]
  - Stem cell transplant [Unknown]
  - Product use in unapproved indication [Unknown]

NARRATIVE: CASE EVENT DATE: 20180710
